FAERS Safety Report 17222955 (Version 2)
Quarter: 2020Q1

REPORT INFORMATION
  Report Type: Report from Study
  Country: ES (occurrence: ES)
  Receive Date: 20200102
  Receipt Date: 20200117
  Transmission Date: 20200409
  Serious: Yes (Hospitalization)
  Sender: FDA-Public Use
  Company Number: ES-ROCHE-2497942

PATIENT
  Age: 72 Year
  Sex: Female

DRUGS (17)
  1. TRASTUZUMAB. [Suspect]
     Active Substance: TRASTUZUMAB
     Indication: HER-2 POSITIVE BREAST CANCER
     Dosage: LOADING DOSE, AS PER PROTOCOL
     Route: 041
     Dates: start: 20190718, end: 20191121
  2. PERTUZUMAB. [Suspect]
     Active Substance: PERTUZUMAB
     Indication: HER-2 POSITIVE BREAST CANCER
     Dosage: LOADING DOSE, AS PER PROTOCOL
     Route: 042
     Dates: start: 20190718, end: 20191121
  3. TRASTUZUMAB. [Suspect]
     Active Substance: TRASTUZUMAB
     Dosage: MAINTAINENCE DOSE, ON DAY 1 OF EACH 3 WEEKS FOR 6 CYCLES, AS PER PROTOCOL?DATE OF MOST RECENT DOSE P
     Route: 041
  4. METFORMINE [METFORMIN] [Concomitant]
     Active Substance: METFORMIN HYDROCHLORIDE
     Indication: DIABETES MELLITUS
  5. GLIMEPIRIDA [Concomitant]
     Active Substance: GLIMEPIRIDE
     Indication: DIABETES MELLITUS
  6. ALPRAZOLAM. [Concomitant]
     Active Substance: ALPRAZOLAM
     Indication: ANXIETY
  7. PACLITAXEL. [Suspect]
     Active Substance: PACLITAXEL
     Indication: HER-2 POSITIVE BREAST CANCER
     Dosage: FREQUENCY: ON DAY 1 AND DAY 8 OF EACH 3 WEEKS FOR 6 CYCLES, AS PER PROTOCOL?DATE OF MOST RECENT DOSE
     Route: 042
     Dates: start: 20190718, end: 20191003
  8. VALSARTAN/HIDROCLOROTIAZIDA [Concomitant]
     Indication: HYPERTENSION
  9. SIMVASTATINE [Concomitant]
     Active Substance: SIMVASTATIN
     Indication: HYPERCHOLESTEROLAEMIA
  10. AMLODIPINE [Concomitant]
     Active Substance: AMLODIPINE BESYLATE
     Indication: HYPERTENSION
  11. SOLIFENACINE [SOLIFENACIN] [Concomitant]
     Indication: INCONTINENCE
  12. ZOLPIDEM [Concomitant]
     Active Substance: ZOLPIDEM TARTRATE
     Indication: INSOMNIA
  13. PERTUZUMAB. [Suspect]
     Active Substance: PERTUZUMAB
     Dosage: MAINTAINENCE DOSE, ON DAY 1 OF EACH 3 WEEKS FOR 6 CYCLES, AS PER PROTOCOL?DATE OF MOST RECENT DOSE P
     Route: 042
  14. CARBOPLATIN. [Suspect]
     Active Substance: CARBOPLATIN
     Indication: HER-2 POSITIVE BREAST CANCER
     Dosage: DOSE AND FREQUENCY: AUC (AREA UNDER CURVE) 2, ON DAY 1 AND DAY 8 OF EACH 3 WEEKS FOR 6 CYCLES, AS PE
     Route: 042
     Dates: start: 20190718, end: 20191128
  15. VILDAGLIPTINA [Concomitant]
     Indication: DIABETES MELLITUS
  16. PIOGLITAZONE. [Concomitant]
     Active Substance: PIOGLITAZONE
     Indication: DIABETES MELLITUS
  17. ATEZOLIZUMAB. [Suspect]
     Active Substance: ATEZOLIZUMAB
     Indication: HER-2 POSITIVE BREAST CANCER
     Dosage: FREQUENCY: ON DAY 1 OF EACH 3 WEEKS FOR 6 CYCLES, AS PER PROTOCOL?DATE OF MOST RECENT DOSE PRIOR TO
     Route: 042
     Dates: start: 20190718, end: 20191121

REACTIONS (2)
  - Agitation [Not Recovered/Not Resolved]
  - Encephalopathy [Recovered/Resolved]

NARRATIVE: CASE EVENT DATE: 20191208
